FAERS Safety Report 6964479-3 (Version None)
Quarter: 2010Q3

REPORT INFORMATION
  Report Type: 
  Country: None (occurrence: None)
  Receive Date: 20100903
  Receipt Date: 20100823
  Transmission Date: 20110219
  Serious: Yes (Other)
  Sender: FDA-Public Use
  Company Number: NL-PFIZER INC-2010083276

PATIENT
  Age: 60 Year
  Sex: Female

DRUGS (4)
  1. LYRICA [Suspect]
     Indication: NEURALGIA
     Dosage: 600 MG DAILY
     Dates: start: 20060101
  2. TRAMADOL [Concomitant]
     Dosage: UNK
     Dates: start: 20060101
  3. DICLOFENAC [Concomitant]
     Dosage: UNK
     Dates: start: 20060101
  4. PARACETAMOL [Concomitant]
     Dosage: UNK
     Dates: start: 20060101

REACTIONS (7)
  - ADHESION [None]
  - DRUG TOLERANCE DECREASED [None]
  - DYSGEUSIA [None]
  - GASTROINTESTINAL DISORDER [None]
  - PAIN [None]
  - SURGERY [None]
  - SURGICAL FAILURE [None]
